FAERS Safety Report 20071517 (Version 1)
Quarter: 2021Q4

REPORT INFORMATION
  Report Type: Spontaneous
  Country: ES (occurrence: ES)
  Receive Date: 20211115
  Receipt Date: 20211115
  Transmission Date: 20220303
  Serious: Yes (Other)
  Sender: FDA-Public Use
  Company Number: ES-CELLTRION INC.-2021ES015020

PATIENT

DRUGS (6)
  1. RITUXIMAB [Suspect]
     Active Substance: RITUXIMAB
     Indication: Follicular lymphoma stage IV
     Dosage: COMPLETED 8 CYCLES
     Route: 058
     Dates: start: 2013
  2. CYCLOPHOSPHAMIDE [Suspect]
     Active Substance: CYCLOPHOSPHAMIDE
     Indication: Follicular lymphoma stage IV
     Dosage: COMPLETED 8 CYCLES
     Dates: start: 2013
  3. PREDNISONE [Suspect]
     Active Substance: PREDNISONE
     Indication: Follicular lymphoma stage IV
     Dosage: COMPLETED 8 CYCLES
     Dates: start: 2013
  4. VINCRISTINE SULFATE [Suspect]
     Active Substance: VINCRISTINE SULFATE
     Indication: Follicular lymphoma stage IV
     Dosage: COMPLETED 8 CYCLES
     Dates: start: 2013
  5. DOXORUBICIN HYDROCHLORIDE [Suspect]
     Active Substance: DOXORUBICIN HYDROCHLORIDE
     Indication: Follicular lymphoma stage IV
     Dosage: COMPLETED 8 CYCLES
     Dates: start: 2013
  6. BENDAMUSTINE [Concomitant]
     Active Substance: BENDAMUSTINE

REACTIONS (2)
  - Thrombocytopenia [Unknown]
  - Off label use [Unknown]
